FAERS Safety Report 6866360-7 (Version None)
Quarter: 2010Q3

REPORT INFORMATION
  Report Type: 
  Country: None (occurrence: None)
  Receive Date: 20100722
  Receipt Date: 20100719
  Transmission Date: 20110219
  Serious: Yes (Hospitalization)
  Sender: FDA-Public Use
  Company Number: FR-BRISTOL-MYERS SQUIBB COMPANY-15200553

PATIENT
  Age: 78 Year
  Sex: Male

DRUGS (8)
  1. PRAVIGARD PAC (COPACKAGED) [Suspect]
     Route: 048
     Dates: end: 20100217
  2. PREVISCAN [Suspect]
     Indication: ATRIAL FIBRILLATION
     Dosage: STOP DATE ON 17FEB10. AGAIN RESTARTED ON 22FEB10
     Route: 048
  3. STAGID [Concomitant]
  4. JANUVIA [Concomitant]
  5. FUROSEMIDE [Concomitant]
  6. BISOPROLOL [Concomitant]
  7. AVODART [Concomitant]
  8. RASILEZ [Concomitant]

REACTIONS (2)
  - GASTRIC ULCER HAEMORRHAGE [None]
  - SHOCK [None]
